FAERS Safety Report 7911375-0 (Version None)
Quarter: 2011Q4

REPORT INFORMATION
  Report Type: 
  Country: None (occurrence: None)
  Receive Date: 20111114
  Receipt Date: 20111102
  Transmission Date: 20120403
  Serious: Yes (Death, Hospitalization, Other)
  Sender: FDA-Public Use
  Company Number: JP-ASTELLAS-2011US004835

PATIENT
  Sex: Male
  Weight: 67 kg

DRUGS (7)
  1. CODEINE PHOSPHATE [Concomitant]
     Indication: PRODUCT USED FOR UNKNOWN INDICATION
     Dosage: 1 DF, 3 IN 1 D
     Route: 048
     Dates: start: 20100917, end: 20110101
  2. PURSENNID [Concomitant]
     Indication: PRODUCT USED FOR UNKNOWN INDICATION
     Dosage: 1 DF, 1 IN 1 D
     Route: 048
     Dates: start: 20110607, end: 20110101
  3. CEFAZOLIN SODIUM [Concomitant]
     Indication: PRODUCT USED FOR UNKNOWN INDICATION
     Dosage: 1 DF, 3 IN 1 D
     Route: 048
     Dates: start: 20110614, end: 20110101
  4. TARCEVA [Suspect]
     Indication: LUNG ADENOCARCINOMA
     Dosage: 150 MG, UID/QD
     Route: 048
     Dates: start: 20110629, end: 20110803
  5. GASMOTIN [Concomitant]
     Indication: PRODUCT USED FOR UNKNOWN INDICATION
     Dosage: 1 DF, 3 IN 1D
     Route: 048
     Dates: start: 20110607, end: 20110101
  6. LYRICA [Concomitant]
     Indication: PRODUCT USED FOR UNKNOWN INDICATION
     Dosage: 1 DF,  2 IN 1 D
     Route: 048
     Dates: start: 20110618, end: 20110101
  7. MAGNESIUM OXIDE [Concomitant]
     Indication: PRODUCT USED FOR UNKNOWN INDICATION
     Dosage: 0.5 G, 3 IN 1 D
     Route: 048
     Dates: start: 20100917, end: 20110101

REACTIONS (8)
  - DISSEMINATED INTRAVASCULAR COAGULATION [None]
  - DEHYDRATION [None]
  - DISEASE PROGRESSION [None]
  - ASTHENIA [None]
  - DECREASED APPETITE [None]
  - BLOOD VISCOSITY INCREASED [None]
  - ACUTE MYOCARDIAL INFARCTION [None]
  - ELECTROCARDIOGRAM ST SEGMENT ELEVATION [None]
